FAERS Safety Report 6907750-3 (Version None)
Quarter: 2010Q3

REPORT INFORMATION
  Report Type: 
  Country: None (occurrence: None)
  Receive Date: 20100716
  Receipt Date: 20090612
  Transmission Date: 20110219
  Serious: Yes (Other)
  Sender: FDA-Public Use
  Company Number: 2009204800

PATIENT
  Sex: Female
  Weight: 81.6 kg

DRUGS (6)
  1. CELEBREX [Suspect]
     Indication: ARTHRITIS
     Dosage: 200 MG, 1X/DAY
     Dates: start: 20090322, end: 20090322
  2. POTASSIUM CHLORIDE [Concomitant]
  3. BENAZEPRIL HYDROCHLORIDE [Concomitant]
  4. DIGOXIN [Concomitant]
  5. METOPROLOL SUCCINATE [Concomitant]
  6. AMLODIPINE [Concomitant]

REACTIONS (4)
  - BED REST [None]
  - DYSPNOEA [None]
  - HYPERSENSITIVITY [None]
  - PALPITATIONS [None]
